FAERS Safety Report 13351894 (Version 1)
Quarter: 2017Q1

REPORT INFORMATION
  Report Type: Spontaneous
  Country: US (occurrence: US)
  Receive Date: 20170320
  Receipt Date: 20170320
  Transmission Date: 20170429
  Serious: No
  Sender: FDA-Public Use
  Company Number: US-SA-2016SA174110

PATIENT
  Age: 55 Year
  Sex: Female

DRUGS (1)
  1. NASACORT ALLERGY 24HR [Suspect]
     Active Substance: TRIAMCINOLONE ACETONIDE
     Dosage: TWO SPRAY IN EACH NOSTRIL ONCE DAILY.
     Route: 045
     Dates: start: 201609, end: 201609

REACTIONS (3)
  - Cough [Unknown]
  - Respiratory tract irritation [Unknown]
  - Dysphonia [Unknown]
